FAERS Safety Report 4495052-7 (Version None)
Quarter: 2004Q4

REPORT INFORMATION
  Report Type: 
  Country: None (occurrence: None)
  Receive Date: 20041108
  Receipt Date: 20041015
  Transmission Date: 20050328
  Serious: Yes (Hospitalization)
  Sender: FDA-Public Use
  Company Number: NL-ABBOTT-04P-114-0277767-00

PATIENT
  Sex: Male

DRUGS (9)
  1. DEPAKINE SYRUP [Suspect]
     Indication: STATUS EPILEPTICUS
     Route: 048
     Dates: start: 20040822, end: 20040823
  2. DEPAKINE SYRUP [Suspect]
     Indication: EPILEPSY
     Route: 048
     Dates: start: 20040826, end: 20040826
  3. DEPAKINE SOLUTION [Suspect]
     Indication: EPILEPSY
     Route: 048
     Dates: start: 20040818, end: 20040821
  4. DEPAKINE SOLUTION [Suspect]
     Indication: STATUS EPILEPTICUS
     Route: 048
     Dates: start: 20040827
  5. DEPAKINE SOLUTION [Suspect]
     Dates: start: 20040826, end: 20040826
  6. LAMOTRIGINE [Concomitant]
     Indication: EPILEPSY
     Route: 048
     Dates: start: 20040922
  7. FLUTICASONE PROPIONATE [Concomitant]
     Indication: DRUG USE FOR UNKNOWN INDICATION
     Dates: start: 20030101
  8. FUSIDINIC ACID/TRIAMCINOLONACETONIDE [Concomitant]
     Indication: DRUG USE FOR UNKNOWN INDICATION
     Route: 061
     Dates: start: 20020101
  9. CLONAZEPAM [Concomitant]
     Indication: DRUG USE FOR UNKNOWN INDICATION
     Dates: start: 20040827

REACTIONS (3)
  - ABNORMAL BEHAVIOUR [None]
  - DRUG INEFFECTIVE [None]
  - STATUS EPILEPTICUS [None]
